FAERS Safety Report 6062421-3 (Version None)
Quarter: 2009Q1

REPORT INFORMATION
  Report Type: 
  Country: None (occurrence: None)
  Receive Date: 20090203
  Receipt Date: 20090127
  Transmission Date: 20090719
  Serious: Yes (Other)
  Sender: FDA-Public Use
  Company Number: US-BIOGENIDEC-2009BI002752

PATIENT
  Sex: Female

DRUGS (4)
  1. AVONEX [Suspect]
     Indication: MULTIPLE SCLEROSIS
     Route: 030
     Dates: start: 20000101, end: 20030101
  2. AVONEX [Suspect]
     Route: 030
     Dates: start: 20030101
  3. LANTUS [Concomitant]
     Indication: DIABETES MELLITUS
  4. METFORMIN [Concomitant]
     Indication: DIABETES MELLITUS

REACTIONS (10)
  - BLOOD CHOLESTEROL INCREASED [None]
  - DEPRESSION [None]
  - DIABETES MELLITUS [None]
  - FIBROMYALGIA [None]
  - INCREASED TENDENCY TO BRUISE [None]
  - INJECTION SITE ERYTHEMA [None]
  - JOINT SWELLING [None]
  - MEMORY IMPAIRMENT [None]
  - OSTEONECROSIS [None]
  - THROMBOSIS [None]
